FAERS Safety Report 21397747 (Version 2)
Quarter: 2022Q4

REPORT INFORMATION
  Report Type: Report from Study
  Country: MX (occurrence: MX)
  Receive Date: 20220930
  Receipt Date: 20221130
  Transmission Date: 20230113
  Serious: Yes (Death, Life-Threatening, Hospitalization, Disabling)
  Sender: FDA-Public Use
  Company Number: MX-JNJFOC-20220449959

PATIENT
  Age: 66 Year
  Sex: Female
  Weight: 68.1 kg

DRUGS (12)
  1. AMIVANTAMAB [Suspect]
     Active Substance: AMIVANTAMAB
     Indication: Non-small cell lung cancer metastatic
     Route: 042
     Dates: start: 20220309, end: 20220407
  2. AMLODIPINE [Concomitant]
     Active Substance: AMLODIPINE BESYLATE
     Indication: Hypertension
     Route: 048
     Dates: start: 20130101
  3. SENNOSIDES [Concomitant]
     Active Substance: SENNOSIDES
     Indication: Constipation
     Route: 048
     Dates: start: 20211221
  4. FERROUS SULFATE [Concomitant]
     Active Substance: FERROUS SULFATE
     Indication: Anaemia
     Route: 048
     Dates: start: 20211221
  5. SODIUM CHLORIDE [Concomitant]
     Active Substance: SODIUM CHLORIDE
     Indication: Nasal dryness
     Route: 045
     Dates: start: 20220330
  6. HYDROCORTISONE [Concomitant]
     Active Substance: HYDROCORTISONE
     Indication: Rash
     Route: 061
     Dates: start: 20220416
  7. OXYMETAZOLINE [Concomitant]
     Active Substance: OXYMETAZOLINE
     Indication: Nasal dryness
     Route: 045
     Dates: start: 20220416
  8. DEXPANTHENOL [Concomitant]
     Active Substance: DEXPANTHENOL
     Indication: Nasal dryness
     Route: 045
     Dates: start: 20220416
  9. CELECOXIB [Concomitant]
     Active Substance: CELECOXIB
     Indication: Pain
     Route: 048
     Dates: start: 20220309
  10. CERAVE ECZEMA CREAMY OIL [Concomitant]
     Indication: Rash
     Route: 061
     Dates: start: 20220406
  11. LOPERAMIDA [LOPERAMIDE] [Concomitant]
     Indication: Diarrhoea
     Route: 048
     Dates: start: 20220323
  12. SEA WATER [Concomitant]
     Active Substance: SEA WATER
     Indication: Nasal dryness
     Route: 045
     Dates: start: 20220330

REACTIONS (1)
  - Hypersensitivity pneumonitis [Fatal]

NARRATIVE: CASE EVENT DATE: 20220416
